FAERS Safety Report 15729128 (Version 1)
Quarter: 2018Q4

REPORT INFORMATION
  Report Type: Report from Study
  Country: JP (occurrence: JP)
  Receive Date: 20181217
  Receipt Date: 20181217
  Transmission Date: 20190205
  Serious: Yes (Hospitalization)
  Sender: FDA-Public Use
  Company Number: JP-IPSEN BIOPHARMACEUTICALS, INC.-2018-19160

PATIENT
  Age: 52 Year
  Sex: Male

DRUGS (8)
  1. TAKEPRON [Concomitant]
     Active Substance: LANSOPRAZOLE
  2. URSO [Concomitant]
     Active Substance: URSODIOL
     Dates: start: 20150915, end: 20161219
  3. ZACRAS [Concomitant]
     Active Substance: AMLODIPINE BESYLATE\AZILSARTAN
  4. DEPAS [Concomitant]
     Active Substance: ETIZOLAM
  5. NI [Concomitant]
     Active Substance: UNSPECIFIED INGREDIENT
  6. BEZATOL SR [Concomitant]
     Active Substance: BEZAFIBRATE
     Dates: start: 20150915
  7. SOMATULINE 90MG [Suspect]
     Active Substance: LANREOTIDE ACETATE
     Indication: ACROMEGALY
     Route: 058
     Dates: start: 20150528
  8. REFLEX [Concomitant]
     Active Substance: MIRTAZAPINE

REACTIONS (3)
  - Biliary colic [Recovering/Resolving]
  - Prescribed underdose [Unknown]
  - Cholelithiasis [Recovering/Resolving]

NARRATIVE: CASE EVENT DATE: 20161109
